FAERS Safety Report 6158837-7 (Version None)
Quarter: 2009Q2

REPORT INFORMATION
  Report Type: 
  Country: None (occurrence: None)
  Receive Date: 20090417
  Receipt Date: 20090316
  Transmission Date: 20091009
  Serious: Yes (Hospitalization)
  Sender: FDA-Public Use
  Company Number: ES-CELGENEUS-144-C5013-07111206

PATIENT
  Sex: Male

DRUGS (4)
  1. CC-5013 [Suspect]
     Indication: MULTIPLE MYELOMA
     Route: 048
     Dates: start: 20070801, end: 20071213
  2. CC-5013 [Suspect]
     Route: 048
     Dates: end: 20071213
  3. DEXAMETHASONE TAB [Suspect]
     Indication: MULTIPLE MYELOMA
     Route: 065
     Dates: end: 20070901
  4. DEXAMETHASONE TAB [Suspect]
     Route: 065
     Dates: start: 20071001, end: 20071001

REACTIONS (3)
  - DISEASE PROGRESSION [None]
  - NEUTROPENIA [None]
  - PANCREATITIS ACUTE [None]
